FAERS Safety Report 8947031 (Version 1)
Quarter: 2012Q4

REPORT INFORMATION
  Report Type: 
  Country: US (occurrence: US)
  Receive Date: 20121205
  Receipt Date: 20121205
  Transmission Date: 20130627
  Serious: No
  Sender: FDA-Public Use
  Company Number: US-PFIZER INC-2012300516

PATIENT

DRUGS (1)
  1. CELEBREX [Suspect]
     Indication: PELVIC FRACTURE
     Dosage: 200 mg, one day

REACTIONS (1)
  - Rash [Unknown]
